FAERS Safety Report 6463568-X (Version None)
Quarter: 2009Q4

REPORT INFORMATION
  Report Type: 
  Country: None (occurrence: None)
  Receive Date: 20091118
  Receipt Date: 20091104
  Transmission Date: 20100525
  Serious: Yes (Death, Hospitalization)
  Sender: FDA-Public Use
  Company Number: THYM-1001250

PATIENT
  Age: 57 Year
  Sex: Male
  Weight: 66 kg

DRUGS (4)
  1. THYMOGLOBULIN [Suspect]
     Indication: APLASTIC ANAEMIA
     Dosage: 3.75 MG/KG, QD, INTRAVENOUS
     Route: 042
     Dates: start: 20090810, end: 20090812
  2. CYCLOSPORINE [Concomitant]
  3. PROTON PUMP INHIBITORS [Concomitant]
  4. METHYLPREDNISOLONE [Concomitant]

REACTIONS (5)
  - BACTERIAL SEPSIS [None]
  - CEREBRAL HAEMORRHAGE [None]
  - GASTRITIS BACTERIAL [None]
  - PANCYTOPENIA [None]
  - STENOTROPHOMONAS SEPSIS [None]
